FAERS Safety Report 6963846-1 (Version None)
Quarter: 2010Q3

REPORT INFORMATION
  Report Type: 
  Country: None (occurrence: None)
  Receive Date: 20100830
  Receipt Date: 20100823
  Transmission Date: 20110219
  Serious: Yes (Hospitalization)
  Sender: FDA-Public Use
  Company Number: 017582

PATIENT
  Sex: Female
  Weight: 77 kg

DRUGS (13)
  1. CERTOLIZUMAB PEGOL (CERTOLIZUMAB PEGOL) [Suspect]
     Indication: CROHN'S DISEASE
     Dosage: SEE IMAGE
     Route: 058
     Dates: end: 20100823
  2. CERTOLIZUMAB PEGOL (CERTOLIZUMAB PEGOL) [Suspect]
     Indication: CROHN'S DISEASE
     Dosage: SEE IMAGE
     Route: 058
     Dates: start: 20090604
  3. ANUGESIC HC [Concomitant]
  4. CIPROFLOXACIN [Concomitant]
  5. FENTANYL CITRATE [Concomitant]
  6. VERSED [Concomitant]
  7. FAMOTIDINE [Concomitant]
  8. PREVACID [Concomitant]
  9. TYLENOL SINUS MEDICATION [Concomitant]
  10. ZITHROMAX [Concomitant]
  11. VENTOLIN [Concomitant]
  12. TYLENOL-500 [Concomitant]
  13. REACTINE /00884301/ [Concomitant]

REACTIONS (3)
  - EAR INFECTION [None]
  - PNEUMONIA [None]
  - URINARY TRACT INFECTION [None]
